FAERS Safety Report 18604013 (Version 1)
Quarter: 2020Q4

REPORT INFORMATION
  Report Type: Spontaneous
  Country: US (occurrence: US)
  Receive Date: 20201210
  Receipt Date: 20201210
  Transmission Date: 20210114
  Serious: No
  Sender: FDA-Public Use
  Company Number: None

PATIENT
  Age: 44 Year
  Sex: Male

DRUGS (1)
  1. AMBRISENTAN 5MG TABLETS 30/BO: 5MG [Suspect]
     Active Substance: AMBRISENTAN
     Indication: PULMONARY HYPERTENSION
     Route: 048
     Dates: start: 20201201

REACTIONS (5)
  - Peripheral swelling [None]
  - Swelling face [None]
  - Weight increased [None]
  - Dyspnoea [None]
  - Fluid retention [None]

NARRATIVE: CASE EVENT DATE: 20201210
